FAERS Safety Report 11858756 (Version 2)
Quarter: 2016Q1

REPORT INFORMATION
  Report Type: Spontaneous
  Country: US (occurrence: US)
  Receive Date: 20151222
  Receipt Date: 20160114
  Transmission Date: 20160526
  Serious: Yes (Hospitalization, Other)
  Sender: FDA-Public Use
  Company Number: US-AUROBINDO-AUR-APL-2015-11448

PATIENT
  Age: 35 Year
  Sex: Female

DRUGS (1)
  1. OXYCODONE [Suspect]
     Active Substance: OXYCODONE
     Indication: BACK PAIN
     Route: 048

REACTIONS (8)
  - Spinal cord ischaemia [Not Recovered/Not Resolved]
  - Intentional overdose [Unknown]
  - Unresponsive to stimuli [Unknown]
  - Hypercapnia [Unknown]
  - Quadriplegia [Not Recovered/Not Resolved]
  - Respiratory depression [Unknown]
  - Hypoxia [Unknown]
  - Respiratory acidosis [Unknown]
